FAERS Safety Report 14971671 (Version 2)
Quarter: 2018Q2

REPORT INFORMATION
  Report Type: Spontaneous
  Country: DE (occurrence: DE)
  Receive Date: 20180604
  Receipt Date: 20180609
  Transmission Date: 20180711
  Serious: Yes (Other)
  Sender: FDA-Public Use
  Company Number: DE-009507513-1805DEU014089

PATIENT
  Sex: Male
  Weight: 100 kg

DRUGS (10)
  1. PANTOZOL [Concomitant]
     Active Substance: PANTOPRAZOLE SODIUM
     Indication: GASTRIC DISORDER
     Dosage: UNK
     Dates: start: 20180102
  2. PREVYMIS [Suspect]
     Active Substance: LETERMOVIR
     Dosage: UNK
     Dates: start: 2018
  3. MAGNETRANS [Concomitant]
     Indication: MINERAL SUPPLEMENTATION
     Dosage: UNK
     Dates: start: 20180118
  4. ASPIRIN. [Concomitant]
     Active Substance: ASPIRIN
     Indication: PLATELET AGGREGATION INHIBITION
     Dosage: UNK
     Dates: start: 2009
  5. PREVYMIS [Suspect]
     Active Substance: LETERMOVIR
     Indication: ANTIVIRAL PROPHYLAXIS
     Dosage: UNK
     Dates: start: 20180329, end: 2018
  6. CYCLOSPORINE. [Concomitant]
     Active Substance: CYCLOSPORINE
     Dosage: UNK
  7. POSACONAZOLE [Concomitant]
     Active Substance: POSACONAZOLE
     Indication: ANTIFUNGAL PROPHYLAXIS
     Dosage: 5 ML, TID
     Dates: start: 20180118
  8. SULFAMETHOXAZOLE (+) TRIMETHOPRIM [Concomitant]
     Active Substance: SULFAMETHOXAZOLE\TRIMETHOPRIM
     Indication: PROPHYLAXIS
     Dosage: UNK
     Dates: start: 20180215
  9. SANDIMMUN [Concomitant]
     Active Substance: CYCLOSPORINE
     Dosage: UNK
  10. SANDIMMUN [Concomitant]
     Active Substance: CYCLOSPORINE
     Indication: IMMUNOSUPPRESSION
     Dosage: 75 MG, TWICE A DAY
     Dates: start: 20180502

REACTIONS (3)
  - Graft versus host disease in gastrointestinal tract [Unknown]
  - Underdose [Unknown]
  - Cytomegalovirus infection [Recovered/Resolved]

NARRATIVE: CASE EVENT DATE: 2018
